FAERS Safety Report 6182199-2 (Version None)
Quarter: 2009Q2

REPORT INFORMATION
  Report Type: 
  Country: None (occurrence: None)
  Receive Date: 20090505
  Receipt Date: 20090428
  Transmission Date: 20091009
  Serious: Yes (Other)
  Sender: FDA-Public Use
  Company Number: 2009JP002379

PATIENT
  Age: 65 Year
  Sex: Male
  Weight: 58 kg

DRUGS (11)
  1. VESICARE [Suspect]
     Indication: NEUROGENIC BLADDER
     Dosage: 5 MG, UID/QD, ORAL
     Route: 048
     Dates: start: 20090320, end: 20090329
  2. NEO DOPASTON (CARBIDOPA) [Concomitant]
  3. PERMAX [Concomitant]
  4. MAGMITT (MAGNESIUM OXIDE) [Concomitant]
  5. DOPS (DROXIDOPA) [Concomitant]
  6. METLIGINE (MIDODRINE HYDROCHLORIDE) [Concomitant]
  7. LANSOPRAZOLE [Concomitant]
  8. SUCRALFATE [Concomitant]
  9. DEPAS (ETIZOLAM) [Concomitant]
  10. PURSENNID (SENNOSIDE A+B) [Concomitant]
  11. SODIUM CHLORIDE 0.9% [Concomitant]

REACTIONS (3)
  - DEMENTIA [None]
  - HALLUCINATION [None]
  - SOMNOLENCE [None]
